FAERS Safety Report 6159849-X (Version None)
Quarter: 2009Q2

REPORT INFORMATION
  Report Type: 
  Country: None (occurrence: None)
  Receive Date: 20090420
  Receipt Date: 20090408
  Transmission Date: 20091009
  Serious: Yes (Hospitalization, Other)
  Sender: FDA-Public Use
  Company Number: FR-AVENTIS-200911432FR

PATIENT
  Age: 57 Year
  Sex: Female

DRUGS (9)
  1. TRIATEC                            /00885601/ [Suspect]
     Route: 048
     Dates: start: 20050101
  2. LASILIX                            /00032601/ [Suspect]
     Indication: DRUG USE FOR UNKNOWN INDICATION
     Route: 048
     Dates: start: 20050101
  3. DI-ANTALVIC                        /00220901/ [Suspect]
     Indication: DRUG USE FOR UNKNOWN INDICATION
     Route: 048
     Dates: start: 20050101
  4. MEDIATOR [Suspect]
     Route: 048
     Dates: start: 20030101, end: 20060101
  5. FORADIL [Suspect]
     Route: 055
     Dates: start: 20050101
  6. PAROXETINE BASE [Suspect]
     Indication: DEPRESSION
     Dates: start: 20050101, end: 20070101
  7. XANAX [Suspect]
     Route: 048
     Dates: start: 20050101
  8. DIFFU K [Suspect]
     Route: 048
     Dates: start: 20050101
  9. LEVOTHYROX [Suspect]
     Route: 048
     Dates: start: 20050101

REACTIONS (3)
  - EJECTION FRACTION DECREASED [None]
  - MITRAL VALVE INCOMPETENCE [None]
  - PULMONARY ARTERIAL HYPERTENSION [None]
